FAERS Safety Report 21632881 (Version 1)
Quarter: 2022Q4

REPORT INFORMATION
  Report Type: Report from Study
  Country: FR (occurrence: FR)
  Receive Date: 20221123
  Receipt Date: 20221123
  Transmission Date: 20230112
  Serious: Yes (Hospitalization)
  Sender: FDA-Public Use
  Company Number: FR-ABBVIE-4210783

PATIENT
  Age: 58 Year
  Sex: Male

DRUGS (2)
  1. CARBIDOPA\LEVODOPA [Suspect]
     Active Substance: CARBIDOPA\LEVODOPA
     Indication: Parkinson^s disease
     Dosage: MORNING DOSE: 12 ML, CONTINUOUS FLOW RATE 7H-21H: 5.4 ML/H, 21H-6H/7H: 2.8 ML/H, EXTRA DOSE: 3 ML
     Route: 050
     Dates: start: 20211227
  2. CARBIDOPA\LEVODOPA [Suspect]
     Active Substance: CARBIDOPA\LEVODOPA

REACTIONS (2)
  - Motor dysfunction [Unknown]
  - Device issue [Unknown]

NARRATIVE: CASE EVENT DATE: 20221118
